FAERS Safety Report 13699670 (Version 6)
Quarter: 2021Q3

REPORT INFORMATION
  Report Type: Report from Study
  Country: JP (occurrence: JP)
  Receive Date: 20170629
  Receipt Date: 20210901
  Transmission Date: 20211014
  Serious: Yes (Other)
  Sender: FDA-Public Use
  Company Number: JP-ALXN-A201706703AA

PATIENT
  Age: 39 Year
  Sex: Male

DRUGS (2)
  1. SOLIRIS [Suspect]
     Active Substance: ECULIZUMAB
     Dosage: 900 MG, UNK
     Route: 042
     Dates: end: 20170714
  2. SOLIRIS [Suspect]
     Active Substance: ECULIZUMAB
     Indication: PAROXYSMAL NOCTURNAL HAEMOGLOBINURIA
     Dosage: 600 MG, QW
     Route: 042
     Dates: start: 20110902, end: 20110922

REACTIONS (4)
  - Sepsis [Recovered/Resolved]
  - Inappropriate schedule of product administration [Unknown]
  - Gonococcal infection [Recovered/Resolved]
  - Genitourinary tract gonococcal infection [Recovered/Resolved]

NARRATIVE: CASE EVENT DATE: 20170510
